FAERS Safety Report 20745985 (Version 2)
Quarter: 2022Q3

REPORT INFORMATION
  Report Type: Report from Study
  Country: US (occurrence: US)
  Receive Date: 20220425
  Receipt Date: 20220722
  Transmission Date: 20221027
  Serious: No
  Sender: FDA-Public Use
  Company Number: US-MIRM-000263

PATIENT
  Sex: Male

DRUGS (7)
  1. LIVMARLI [Suspect]
     Active Substance: MARALIXIBAT CHLORIDE
     Indication: Pruritus
     Dates: start: 202201
  2. LIVMARLI [Suspect]
     Active Substance: MARALIXIBAT CHLORIDE
     Indication: Pruritus
     Dosage: 1.5 ML, 9.5 MG/ML
     Dates: start: 202202
  3. LIVMARLI [Suspect]
     Active Substance: MARALIXIBAT CHLORIDE
     Indication: Pruritus
     Dates: start: 202203
  4. LIVMARLI [Suspect]
     Active Substance: MARALIXIBAT CHLORIDE
     Indication: Pruritus
     Dosage: 9.5 MG/ML
     Route: 048
     Dates: start: 20211218
  5. 1328777 (GLOBALC3Sep19): Ursodiol [Concomitant]
     Indication: Product used for unknown indication
     Route: 048
  6. 2947835 (GLOBALC3Sep19): Cetirizine [Concomitant]
     Indication: Product used for unknown indication
     Route: 048
  7. 1328139 (GLOBALC3Sep19): Rifampin [Concomitant]

REACTIONS (5)
  - Pruritus [Not Recovered/Not Resolved]
  - Weight increased [Unknown]
  - Rash [Recovered/Resolved]
  - Pyrexia [Recovered/Resolved]
  - Rash [Recovered/Resolved]

NARRATIVE: CASE EVENT DATE: 20220101
